FAERS Safety Report 7762965-X (Version None)
Quarter: 2011Q3

REPORT INFORMATION
  Report Type: 
  Country: None (occurrence: None)
  Receive Date: 20110920
  Receipt Date: 20110907
  Transmission Date: 20111222
  Serious: Yes (Hospitalization, Other)
  Sender: FDA-Public Use
  Company Number: US-CELGENEUS-163-21880-11033265

PATIENT
  Sex: Female

DRUGS (6)
  1. TYLENOL-500 [Concomitant]
     Route: 065
  2. DEXAMETHASONE [Concomitant]
     Route: 065
     Dates: start: 20110322
  3. VELCADE [Concomitant]
     Route: 065
     Dates: start: 20110301, end: 20110405
  4. BENADRYL [Concomitant]
     Route: 065
  5. REVLIMID [Suspect]
     Dosage: 15 MILLIGRAM
     Route: 048
     Dates: start: 20110322, end: 20110505
  6. REVLIMID [Suspect]
     Indication: MULTIPLE MYELOMA
     Dosage: 25 MILLIGRAM
     Route: 048
     Dates: start: 20081101, end: 20090101

REACTIONS (7)
  - HYPERSENSITIVITY [None]
  - HYPOTENSION [None]
  - OEDEMA PERIPHERAL [None]
  - DIARRHOEA [None]
  - NEUROMA [None]
  - PARAESTHESIA [None]
  - URTICARIA [None]
